FAERS Safety Report 5640789-7 (Version None)
Quarter: 2008Q1

REPORT INFORMATION
  Report Type: 
  Country: None (occurrence: None)
  Receive Date: 20080227
  Receipt Date: 20080215
  Transmission Date: 20080703
  Serious: Yes (Hospitalization, Other)
  Sender: FDA-Public Use
  Company Number: US-ELI_LILLY_AND_COMPANY-US200801004576

PATIENT
  Sex: Female

DRUGS (3)
  1. FORTEO [Suspect]
     Indication: OSTEOPOROSIS
     Dosage: UNK, UNK
     Route: 058
     Dates: end: 20080101
  2. TIAZAC [Concomitant]
     Dosage: 180 UNK, 2/D
  3. DEMADEX [Concomitant]
     Dosage: 20 MG, DAILY (1/D)

REACTIONS (4)
  - ASTHENIA [None]
  - CORONARY ARTERIAL STENT INSERTION [None]
  - ILL-DEFINED DISORDER [None]
  - MYOCARDIAL INFARCTION [None]
